FAERS Safety Report 4738303-3 (Version None)
Quarter: 2005Q3

REPORT INFORMATION
  Report Type: 
  Country: None (occurrence: None)
  Receive Date: 20050808
  Receipt Date: 20050808
  Transmission Date: 20060218
  Serious: Yes (Life-Threatening, Hospitalization)
  Sender: FDA-Public Use
  Company Number: None

PATIENT
  Sex: Female
  Weight: 113.3993 kg

DRUGS (3)
  1. ABILIFY [Suspect]
     Dosage: 30 QD
     Dates: start: 20040608
  2. LAMICTAL [Suspect]
     Dosage: 250 BID
     Dates: start: 20050211
  3. .............. [Concomitant]

REACTIONS (7)
  - AMNESIA [None]
  - CIRCULATORY COLLAPSE [None]
  - COMA [None]
  - COUGH [None]
  - DRUG INTERACTION [None]
  - NERVOUS SYSTEM DISORDER [None]
  - PSYCHOTIC DISORDER [None]
